FAERS Safety Report 4588424-3 (Version None)
Quarter: 2005Q1

REPORT INFORMATION
  Report Type: 
  Country: None (occurrence: None)
  Receive Date: 20050215
  Receipt Date: 20050215
  Transmission Date: 20050727
  Serious: Yes (Disabling)
  Sender: FDA-Public Use
  Company Number: None

PATIENT
  Age: 72 Year
  Sex: Male
  Weight: 80.7403 kg

DRUGS (1)
  1. LEVAQUIN [Suspect]
     Indication: PROSTATITIS
     Dosage: 1 DAY ORAL
     Route: 048
     Dates: start: 20041004, end: 20041017

REACTIONS (3)
  - ASTHENIA [None]
  - MYALGIA [None]
  - TREMOR [None]
